FAERS Safety Report 8420254-4 (Version None)
Quarter: 2012Q2

REPORT INFORMATION
  Report Type: 
  Country: None (occurrence: None)
  Receive Date: 20120607
  Receipt Date: 20120531
  Transmission Date: 20120825
  Serious: Yes (Hospitalization, Other)
  Sender: FDA-Public Use
  Company Number: US-AMGEN-US378639

PATIENT
  Age: 78 Year
  Sex: Male

DRUGS (11)
  1. NPLATE [Suspect]
     Indication: IDIOPATHIC THROMBOCYTOPENIC PURPURA
     Dosage: 100 MUG, UNK
     Dates: start: 20091022
  2. NPLATE [Suspect]
     Dosage: 4 MUG/KG, UNK
     Dates: end: 20091119
  3. NPLATE [Suspect]
     Dosage: 100 MUG, UNK
     Dates: start: 20091029
  4. NPLATE [Suspect]
     Dosage: 300 MUG, UNK
     Dates: start: 20091112
  5. NPLATE [Suspect]
     Dosage: UNK
  6. NPLATE [Suspect]
     Dosage: 500 MUG, UNK
     Dates: start: 20091125, end: 20091126
  7. NPLATE [Suspect]
     Dosage: 500 MUG, UNK
     Route: 058
     Dates: start: 20091022, end: 20091119
  8. CORTICOSTEROIDS [Concomitant]
     Dosage: UNK
     Dates: start: 20090415
  9. NPLATE [Suspect]
     Dosage: 200 MUG, UNK
     Dates: start: 20091105
  10. NPLATE [Suspect]
     Dosage: 400 MUG, UNK
     Dates: start: 20091119
  11. PROTONIX [Concomitant]
     Dosage: UNK

REACTIONS (6)
  - ABDOMINAL ADHESIONS [None]
  - THROMBOCYTOPENIA [None]
  - ANAEMIA [None]
  - GASTROINTESTINAL HAEMORRHAGE [None]
  - IDIOPATHIC THROMBOCYTOPENIC PURPURA [None]
  - DRUG INEFFECTIVE [None]
